FAERS Safety Report 6826531-2 (Version None)
Quarter: 2010Q3

REPORT INFORMATION
  Report Type: 
  Country: None (occurrence: None)
  Receive Date: 20100709
  Receipt Date: 20100630
  Transmission Date: 20110219
  Serious: Yes (Hospitalization)
  Sender: FDA-Public Use
  Company Number: PHHY2010US42752

PATIENT
  Age: 42 Year
  Sex: Female

DRUGS (2)
  1. TEGRETOL [Suspect]
  2. LAMOTRIGINE [Suspect]

REACTIONS (4)
  - INFLUENZA LIKE ILLNESS [None]
  - LIVER FUNCTION TEST ABNORMAL [None]
  - PYREXIA [None]
  - RASH [None]
